FAERS Safety Report 16193601 (Version 1)
Quarter: 2019Q2

REPORT INFORMATION
  Report Type: Spontaneous
  Country: CA (occurrence: CA)
  Receive Date: 20190413
  Receipt Date: 20190413
  Transmission Date: 20190711
  Serious: Yes (Other)
  Sender: FDA-Public Use
  Company Number: CA-TEVA-2019-CA-1037026

PATIENT
  Sex: Female

DRUGS (33)
  1. XELJANZ [Suspect]
     Active Substance: TOFACITINIB CITRATE
     Indication: PRODUCT USED FOR UNKNOWN INDICATION
     Route: 065
  2. NORFLEX [Concomitant]
     Active Substance: ORPHENADRINE CITRATE
  3. ORENCIA [Suspect]
     Active Substance: ABATACEPT
     Indication: PRODUCT USED FOR UNKNOWN INDICATION
     Route: 065
  4. HYDROMORPHONE [Concomitant]
     Active Substance: HYDROMORPHONE
  5. RESTASIS [Concomitant]
     Active Substance: CYCLOSPORINE
     Dosage: EMULSION
     Route: 065
  6. TRIMETHOPRIM. [Concomitant]
     Active Substance: TRIMETHOPRIM
     Route: 065
  7. ARAVA [Suspect]
     Active Substance: LEFLUNOMIDE
     Indication: RHEUMATOID ARTHRITIS
     Route: 065
  8. ATIVAN [Concomitant]
     Active Substance: LORAZEPAM
  9. DILAUDID [Concomitant]
     Active Substance: HYDROMORPHONE HYDROCHLORIDE
  10. KENALOG [Concomitant]
     Active Substance: TRIAMCINOLONE ACETONIDE
     Dosage: SUSPENSION INTRAARTICULAR
     Route: 014
  11. OMNARIS [Concomitant]
     Active Substance: CICLESONIDE
     Dosage: SPRAY, METERED DOSE
  12. SYNTHROID [Concomitant]
     Active Substance: LEVOTHYROXINE SODIUM
  13. VAGIFEM [Concomitant]
     Active Substance: ESTRADIOL
     Route: 065
  14. DARIFENACIN HYDROBROMIDE. [Concomitant]
     Active Substance: DARIFENACIN HYDROBROMIDE
  15. DESOXIMETASONE. [Concomitant]
     Active Substance: DESOXIMETASONE
  16. REMICADE [Concomitant]
     Active Substance: INFLIXIMAB
     Dosage: 200 MG,POWDER FOR SOLUTION INTRAVENOUS
     Route: 065
  17. RITUXAN [Concomitant]
     Active Substance: RITUXIMAB
     Dosage: SOLUTION INTRAVENOUS
     Route: 042
  18. METHOTREXATE. [Suspect]
     Active Substance: METHOTREXATE
     Indication: PRODUCT USED FOR UNKNOWN INDICATION
     Dosage: 25 MG, 1 EVERY 1 WEEK,
     Route: 065
  19. HUMIRA [Suspect]
     Active Substance: ADALIMUMAB
     Indication: PRODUCT USED FOR UNKNOWN INDICATION
     Dosage: 200 MG, 2 EVERY 1 WEEK, SOLUTION SUBCUTANEOUS
     Route: 058
  20. ANAKINRA [Concomitant]
     Active Substance: ANAKINRA
  21. LASIX [Concomitant]
     Active Substance: FUROSEMIDE
  22. LOPERAMIDE [Concomitant]
     Active Substance: LOPERAMIDE
  23. PANTOPRAZOLE SODIUM ANHYDROUS [Concomitant]
     Active Substance: PANTOPRAZOLE SODIUM ANHYDROUS
     Route: 065
  24. URISPAS [Concomitant]
     Active Substance: FLAVOXATE HYDROCHLORIDE
     Route: 065
  25. CODEINE [Concomitant]
     Active Substance: CODEINE
  26. DIPHENHYDRAMINE. [Concomitant]
     Active Substance: DIPHENHYDRAMINE
  27. ACTEMRA [Suspect]
     Active Substance: TOCILIZUMAB
     Indication: PRODUCT USED FOR UNKNOWN INDICATION
     Route: 065
  28. ENBREL [Suspect]
     Active Substance: ETANERCEPT
     Indication: RHEUMATOID ARTHRITIS
     Dosage: 25 MG, 2 EVERY 1 WEEKS,
     Route: 065
  29. HYDROXYCHLOROQUINE [Suspect]
     Active Substance: HYDROXYCHLOROQUINE
     Indication: PRODUCT USED FOR UNKNOWN INDICATION
     Dosage: 200 MG, 2 EVERY 1 WEEK,
     Route: 065
  30. SODIUM AUROTHIOMALATE INJECTION BP [Suspect]
     Active Substance: GOLD SODIUM THIOMALATE
     Indication: PRODUCT USED FOR UNKNOWN INDICATION
     Dosage: SOLUTION INTRAMUSCULAR
     Route: 030
  31. ACETAMINOPHEN. [Concomitant]
     Active Substance: ACETAMINOPHEN
  32. MORPHINE SULFATE. [Concomitant]
     Active Substance: MORPHINE SULFATE
  33. OXYNEO [Concomitant]
     Active Substance: OXYCODONE
     Dosage: (EXTENDED RELEASE)
     Route: 065

REACTIONS (12)
  - Blood cholesterol increased [Unknown]
  - Peripheral swelling [Unknown]
  - Herpes zoster [Unknown]
  - Joint swelling [Unknown]
  - Liver function test abnormal [Unknown]
  - Arthritis [Unknown]
  - Infection [Unknown]
  - Leukopenia [Unknown]
  - Synovitis [Unknown]
  - Anaemia [Unknown]
  - Fibromyalgia [Unknown]
  - Soft tissue disorder [Unknown]
